FAERS Safety Report 25869770 (Version 1)
Quarter: 2025Q4

REPORT INFORMATION
  Report Type: Report from Study
  Country: US (occurrence: US)
  Receive Date: 20251001
  Receipt Date: 20251001
  Transmission Date: 20260117
  Serious: Yes (Hospitalization)
  Sender: BAYER HEALTHCARE PHARMACEUTICALS INC.
  Company Number: US-BAYER-2025A128322

PATIENT
  Age: 52 Year
  Sex: Female

DRUGS (1)
  1. STIVARGA [Suspect]
     Active Substance: REGORAFENIB MONOHYDRATE
     Dosage: 80 MG, QD, ON DAYS 1 THROUGH 21, AND THEN 7 DAYS OFF
     Route: 048
     Dates: start: 202509

REACTIONS (6)
  - Nausea [Unknown]
  - Vomiting [Unknown]
  - Pyrexia [Unknown]
  - Pain [Unknown]
  - Dizziness [Unknown]
  - Product use issue [None]

NARRATIVE: CASE EVENT DATE: 20250901
